FAERS Safety Report 8213235-7 (Version None)
Quarter: 2012Q1

REPORT INFORMATION
  Report Type: 
  Country: None (occurrence: None)
  Receive Date: 20120228
  Receipt Date: 20110418
  Transmission Date: 20120608
  Serious: Yes (Hospitalization, Other)
  Sender: FDA-Public Use
  Company Number: RB-26074-2011

PATIENT
  Sex: Male

DRUGS (4)
  1. XANAX [Concomitant]
  2. SOMA [Concomitant]
  3. SUBUTEX [Suspect]
     Indication: DRUG DEPENDENCE
     Dosage: (20MG TRANSPLACENTAL)
     Route: 064
     Dates: start: 20090601, end: 20100118
  4. SUBOXONE [Suspect]
     Indication: DRUG DEPENDENCE
     Dosage: ( 16 MG TRANSPLACENTAL)
     Route: 064
     Dates: start: 20090401, end: 20090601

REACTIONS (2)
  - FOETAL EXPOSURE DURING PREGNANCY [None]
  - DRUG WITHDRAWAL SYNDROME NEONATAL [None]
